FAERS Safety Report 7985262-6 (Version None)
Quarter: 2011Q4

REPORT INFORMATION
  Report Type: 
  Country: None (occurrence: None)
  Receive Date: 20111216
  Receipt Date: 20111215
  Transmission Date: 20120403
  Serious: Yes (Hospitalization)
  Sender: FDA-Public Use
  Company Number: CA-ABBOTT-11P-028-0881088-00

PATIENT
  Sex: Male

DRUGS (1)
  1. HUMIRA [Suspect]
     Indication: CROHN'S DISEASE
     Route: 058
     Dates: start: 20100210

REACTIONS (8)
  - ABDOMINAL DISTENSION [None]
  - FEELING ABNORMAL [None]
  - INFECTION [None]
  - MUSCLE SPASMS [None]
  - FREQUENT BOWEL MOVEMENTS [None]
  - CROHN'S DISEASE [None]
  - DECREASED APPETITE [None]
  - ABDOMINAL PAIN [None]
